FAERS Safety Report 7905181-0 (Version None)
Quarter: 2011Q4

REPORT INFORMATION
  Report Type: 
  Country: None (occurrence: None)
  Receive Date: 20111109
  Receipt Date: 20111107
  Transmission Date: 20120403
  Serious: Yes (Death)
  Sender: FDA-Public Use
  Company Number: US-CELGENEUS-163-21880-11110951

PATIENT
  Sex: Female

DRUGS (7)
  1. FISH OIL [Concomitant]
     Route: 065
  2. ACYCLOVIR [Concomitant]
     Route: 065
  3. CALCIUM [Concomitant]
     Route: 065
  4. REVLIMID [Suspect]
     Indication: MULTIPLE MYELOMA
     Dosage: 10 MILLIGRAM
     Route: 048
     Dates: start: 20061226, end: 20110802
  5. MULTI-VITAMIN [Concomitant]
     Route: 065
  6. ALLEGRA D 24 HOUR [Concomitant]
     Route: 065
  7. VITAMIN D [Concomitant]
     Route: 065

REACTIONS (1)
  - DEATH [None]
